FAERS Safety Report 4946407-5 (Version None)
Quarter: 2006Q1

REPORT INFORMATION
  Report Type: 
  Country: None (occurrence: None)
  Receive Date: 20060316
  Receipt Date: 20060316
  Transmission Date: 20060701
  Serious: Yes (Other)
  Sender: FDA-Public Use
  Company Number: None

PATIENT
  Sex: Male

DRUGS (1)
  1. BENZOCAINE SPRAY  20%  (HURRICAIN [Suspect]
     Indication: LOCAL ANAESTHESIA
     Dosage: ONCE (SPRAY)

REACTIONS (3)
  - METHAEMOGLOBINAEMIA [None]
  - RESPIRATORY DISTRESS [None]
  - SKIN DISCOLOURATION [None]
